FAERS Safety Report 20198688 (Version 1)
Quarter: 2021Q4

REPORT INFORMATION
  Report Type: Spontaneous
  Country: US (occurrence: None)
  Receive Date: 20211216
  Receipt Date: 20211216
  Transmission Date: 20220303
  Serious: Yes (Other)
  Sender: FDA-Public Use
  Company Number: None

PATIENT
  Age: 33 Year
  Sex: Male
  Weight: 69.3 kg

DRUGS (4)
  1. HALOPERIDOL [Suspect]
     Active Substance: HALOPERIDOL
     Dosage: FREQUENCY : AT BEDTIME;?
     Route: 030
     Dates: start: 20211015, end: 20211016
  2. BENZTROPINE [Concomitant]
     Active Substance: BENZTROPINE
  3. RISPERIDONE [Concomitant]
     Active Substance: RISPERIDONE
  4. LORAZEPAM [Concomitant]
     Active Substance: LORAZEPAM

REACTIONS (2)
  - Nystagmus [None]
  - Tongue disorder [None]

NARRATIVE: CASE EVENT DATE: 20211015
